FAERS Safety Report 6922149-1 (Version None)
Quarter: 2010Q3

REPORT INFORMATION
  Report Type: 
  Country: None (occurrence: None)
  Receive Date: 20100812
  Receipt Date: 20100804
  Transmission Date: 20110219
  Serious: Yes (Life-Threatening)
  Sender: FDA-Public Use
  Company Number: FR-AMGEN-QUU429724

PATIENT
  Sex: Male

DRUGS (7)
  1. ENBREL [Suspect]
     Indication: RHEUMATOID ARTHRITIS
     Dosage: 50 MG TOTAL WEEKLY
     Route: 058
     Dates: start: 20050101
  2. OMEPRAZOLE [Concomitant]
     Route: 048
  3. DOLIPRANE [Concomitant]
     Indication: PAIN
     Dosage: 3 G TOTAL DAILY
     Route: 048
  4. CORTANCYL [Concomitant]
     Indication: RHEUMATOID ARTHRITIS
     Dosage: 10 MG TOTAL DAILY
     Route: 048
  5. CRESTOR [Concomitant]
     Indication: DYSLIPIDAEMIA
     Route: 048
  6. IBUPROFEN TABLETS [Concomitant]
     Indication: PAIN
     Dosage: 1.2 G UNTIL 2.4 G DAILY, AS SELF MEDICATION
     Route: 048
  7. TRIATEC [Concomitant]
     Indication: HYPERTENSION
     Route: 048

REACTIONS (1)
  - MYOCARDIAL INFARCTION [None]
